FAERS Safety Report 12491268 (Version 1)
Quarter: 2016Q2

REPORT INFORMATION
  Report Type: Spontaneous
  Country: US (occurrence: None)
  Receive Date: 20160622
  Receipt Date: 20160622
  Transmission Date: 20160815
  Serious: No
  Sender: FDA-Public Use
  Company Number: None

PATIENT
  Age: 45 Year
  Sex: Male

DRUGS (2)
  1. SOVALDI [Suspect]
     Active Substance: SOFOSBUVIR
  2. HYDROXYCUT [Concomitant]
     Active Substance: HERBALS

REACTIONS (2)
  - Paranoia [None]
  - Mood altered [None]

NARRATIVE: CASE EVENT DATE: 20160621
